FAERS Safety Report 8815642 (Version 1)
Quarter: 2012Q4

REPORT INFORMATION
  Report Type: 
  Country: AR (occurrence: AR)
  Receive Date: 20120928
  Receipt Date: 20120928
  Transmission Date: 20130627
  Serious: Yes (Death, Life-Threatening, Hospitalization)
  Sender: FDA-Public Use
  Company Number: AR-B.I. PHARMACEUTICALS,INC./RIDGEFIELD-2012-RA-00275RA

PATIENT
  Age: 56 Year
  Sex: Male
  Weight: 80 kg

DRUGS (1)
  1. PRADAXA [Suspect]
     Indication: PULMONARY HYPERTENSION
     Dosage: 300 mg
     Route: 048
     Dates: start: 201208, end: 201209

REACTIONS (4)
  - Shock [Fatal]
  - Right ventricular failure [Fatal]
  - Gastrointestinal haemorrhage [Fatal]
  - Haematuria [Fatal]
